FAERS Safety Report 7219630-7 (Version None)
Quarter: 2011Q1

REPORT INFORMATION
  Report Type: 
  Country: None (occurrence: None)
  Receive Date: 20110111
  Receipt Date: 20101228
  Transmission Date: 20110831
  Serious: Yes (Hospitalization, Other)
  Sender: FDA-Public Use
  Company Number: JP-GENZYME-FLUD-1000623

PATIENT
  Sex: Male
  Weight: 61 kg

DRUGS (13)
  1. FLUDARA [Suspect]
     Indication: STEM CELL TRANSPLANT
     Dosage: UNK
     Route: 065
     Dates: start: 20100129, end: 20100130
  2. CYTARABINE [Suspect]
     Indication: STEM CELL TRANSPLANT
     Dosage: UNK
     Route: 065
     Dates: start: 20100129, end: 20100130
  3. TACROLIMUS [Concomitant]
     Indication: PROPHYLAXIS AGAINST GRAFT VERSUS HOST DISEASE
     Dosage: UNK
     Dates: start: 20100203, end: 20100206
  4. CIPROFLOXACIN HCL [Concomitant]
     Indication: PREMEDICATION
     Dosage: UNK
     Dates: start: 20100129, end: 20100201
  5. THYMOGLOBULIN [Suspect]
     Indication: STEM CELL TRANSPLANT
     Dosage: 119 MG, ONCE
     Route: 042
     Dates: start: 20100201, end: 20100201
  6. METHYLPREDNISOLONE SODIUM SUCCINATE [Concomitant]
     Indication: PROPHYLAXIS AGAINST GRAFT VERSUS HOST DISEASE
     Dosage: UNK
     Dates: start: 20100201, end: 20100201
  7. ACYCLOVIR [Concomitant]
     Indication: PREMEDICATION
     Dosage: UNK
     Dates: start: 20100129, end: 20100222
  8. CYCLOPHOSPHAMIDE [Concomitant]
     Indication: PROPHYLAXIS AGAINST GRAFT VERSUS HOST DISEASE
     Dosage: UNK
     Dates: start: 20100212, end: 20100212
  9. LEVOFLOXACIN [Concomitant]
     Indication: PREMEDICATION
     Dosage: UNK
     Dates: start: 20100125, end: 20100128
  10. ITRACONAZOLE [Concomitant]
     Indication: PREMEDICATION
     Dosage: UNK
     Dates: start: 20100125, end: 20100128
  11. HYDROCORTISONE SODIUM SUCCINATE [Concomitant]
     Indication: PROPHYLAXIS AGAINST GRAFT VERSUS HOST DISEASE
     Dosage: UNK
     Dates: start: 20100129, end: 20100130
  12. THYMOGLOBULIN [Suspect]
     Dosage: 119.1 MG, ONCE
     Route: 042
     Dates: start: 20100202, end: 20100202
  13. SULFAMETHOXAZOLE W [Concomitant]
     Indication: PREMEDICATION
     Dosage: UNK
     Dates: start: 20100125, end: 20100201

REACTIONS (6)
  - ACUTE GRAFT VERSUS HOST DISEASE IN LIVER [None]
  - SEPSIS [None]
  - ACUTE MYELOID LEUKAEMIA RECURRENT [None]
  - BRONCHOPULMONARY ASPERGILLOSIS [None]
  - FEBRILE NEUTROPENIA [None]
  - ACUTE GRAFT VERSUS HOST DISEASE IN SKIN [None]
